FAERS Safety Report 14691651 (Version 2)
Quarter: 2018Q2

REPORT INFORMATION
  Report Type: Report from Study
  Country: None (occurrence: US)
  Receive Date: 20180329
  Receipt Date: 20180402
  Transmission Date: 20180711
  Serious: Yes (Hospitalization, Other)
  Sender: FDA-Public Use
  Company Number: US-ABBVIE-18K-163-2297484-00

PATIENT
  Sex: Female
  Weight: 68.1 kg

DRUGS (6)
  1. SYNTHROID [Suspect]
     Active Substance: LEVOTHYROXINE SODIUM
     Route: 048
     Dates: start: 201710
  2. SIMVASTATIN. [Concomitant]
     Active Substance: SIMVASTATIN
     Indication: BLOOD CHOLESTEROL INCREASED
  3. LEVOTHYROXINE. [Suspect]
     Active Substance: LEVOTHYROXINE
     Indication: HYPOTHYROIDISM
     Route: 048
     Dates: start: 201710, end: 201710
  4. OXYCODONE BLUE COTED [Suspect]
     Active Substance: OXYCODONE
     Indication: MUSCULOSKELETAL PAIN
     Route: 065
     Dates: start: 20161230, end: 201701
  5. XANAX [Concomitant]
     Active Substance: ALPRAZOLAM
     Indication: ANXIETY
  6. SYNTHROID [Suspect]
     Active Substance: LEVOTHYROXINE SODIUM
     Indication: HYPOTHYROIDISM
     Route: 048
     Dates: start: 2015, end: 201701

REACTIONS (8)
  - Fall [Recovered/Resolved]
  - Chest discomfort [Recovered/Resolved]
  - Procedural pain [Recovering/Resolving]
  - Dyspnoea [Recovered/Resolved]
  - Upper limb fracture [Recovered/Resolved]
  - Drug dispensing error [Recovered/Resolved]
  - Abnormal faeces [Recovered/Resolved]
  - Dyspepsia [Recovered/Resolved]

NARRATIVE: CASE EVENT DATE: 20161230
